FAERS Safety Report 12399378 (Version 1)
Quarter: 2016Q2

REPORT INFORMATION
  Report Type: Report from Study
  Country: US (occurrence: US)
  Receive Date: 20160524
  Receipt Date: 20160524
  Transmission Date: 20160815
  Serious: No
  Sender: FDA-Public Use
  Company Number: US-MDT-ADR-2016-00421

PATIENT
  Age: 61 Year
  Sex: Female

DRUGS (6)
  1. DILAUDID [Suspect]
     Active Substance: HYDROMORPHONE HYDROCHLORIDE
     Dosage: 0.7502 MG/DAY
     Route: 037
     Dates: end: 20150326
  2. BUPIVACAINE. [Suspect]
     Active Substance: BUPIVACAINE
     Dosage: 11.990MG/DAY
     Route: 037
     Dates: start: 20150326
  3. DILAUDID [Suspect]
     Active Substance: HYDROMORPHONE HYDROCHLORIDE
     Dosage: 0.9992 MG/DAY
     Route: 037
     Dates: start: 20150326
  4. COMPOUNDED BACLOFEN [Suspect]
     Active Substance: BACLOFEN
     Dosage: 60.01 MCG/DAY
     Route: 037
     Dates: end: 20150326
  5. COMPOUNDED BACLOFEN [Suspect]
     Active Substance: BACLOFEN
     Dosage: 79.93 MCG/DAY
     Route: 037
     Dates: start: 20150326
  6. BUPIVACAINE. [Suspect]
     Active Substance: BUPIVACAINE
     Dosage: 9.002 MG/DAY
     Route: 037
     Dates: end: 20150326

REACTIONS (2)
  - Adverse drug reaction [Recovered/Resolved]
  - Dizziness [Recovered/Resolved]
